FAERS Safety Report 10556752 (Version 3)
Quarter: 2015Q2

REPORT INFORMATION
  Report Type: Spontaneous
  Country: FR (occurrence: FR)
  Receive Date: 20141031
  Receipt Date: 20150626
  Transmission Date: 20150821
  Serious: Yes (Hospitalization)
  Sender: FDA-Public Use
  Company Number: FR-UCBSA-2014016338

PATIENT
  Age: 69 Year
  Sex: Female

DRUGS (4)
  1. DIPIPERON [Concomitant]
     Active Substance: PIPAMPERONE
     Dosage: 5 GTT, ONCE DAILY (QD) AT BEDTIME
  2. ZOLPIDEM [Concomitant]
     Active Substance: ZOLPIDEM\ZOLPIDEM TARTRATE
     Dosage: 10 MG, ONCE DAILY (QD) AT BEDTIME.
  3. CLOPIXOL [Concomitant]
     Active Substance: ZUCLOPENTHIXOL ACETATE
     Dosage: 5 GTT, ONCE DAILY (QD) AT BEDTIME
  4. KEPPRA [Suspect]
     Active Substance: LEVETIRACETAM
     Indication: PRODUCT USED FOR UNKNOWN INDICATION
     Dosage: 500 MG, 2X/DAY (BID)
     Route: 048
     Dates: start: 201312, end: 201406

REACTIONS (6)
  - Disorientation [Recovered/Resolved]
  - Executive dysfunction [Recovered/Resolved]
  - Sleep disorder [Recovered/Resolved]
  - Hyponatraemia [Recovered/Resolved]
  - Confusional state [Recovered/Resolved]
  - Perseveration [Recovered/Resolved]

NARRATIVE: CASE EVENT DATE: 201404
